FAERS Safety Report 7605196-6 (Version None)
Quarter: 2011Q3

REPORT INFORMATION
  Report Type: 
  Country: None (occurrence: None)
  Receive Date: 20110705
  Receipt Date: 20110621
  Transmission Date: 20111222
  Serious: Yes (Hospitalization)
  Sender: FDA-Public Use
  Company Number: 941354

PATIENT
  Age: 45 Year
  Sex: Female
  Weight: 39.7 kg

DRUGS (11)
  1. COLISTIN SULFATE [Concomitant]
  2. ADCAL D3 [Concomitant]
  3. MEROPENEM [Suspect]
     Indication: CONDITION AGGRAVATED
     Dosage: 2 GRAMS, 1 DAY, INTRAVENOUS BOLUS
     Route: 040
     Dates: start: 20110525, end: 20110525
  4. MEROPENEM [Suspect]
     Indication: CYSTIC FIBROSIS
     Dosage: 2 GRAMS, 1 DAY, INTRAVENOUS BOLUS
     Route: 040
     Dates: start: 20110525, end: 20110525
  5. CREON [Concomitant]
  6. MEGESTROL ACETATE [Concomitant]
  7. CARBOCISTEINE [Concomitant]
  8. PULMOZYME [Concomitant]
  9. SYMBICORT [Concomitant]
  10. IPRATROPIUM BROMIDE [Concomitant]
  11. ACETAMINOPHEN AND CODEINE PHOSPHATE [Concomitant]

REACTIONS (7)
  - WRONG TECHNIQUE IN DRUG USAGE PROCESS [None]
  - DYSPNOEA [None]
  - FLUSHING [None]
  - PARAESTHESIA [None]
  - BODY TEMPERATURE INCREASED [None]
  - NO REACTION ON PREVIOUS EXPOSURE TO DRUG [None]
  - HYPERSENSITIVITY [None]
